FAERS Safety Report 10860763 (Version 2)
Quarter: 2016Q2

REPORT INFORMATION
  Report Type: Spontaneous
  Country: SZ (occurrence: CH)
  Receive Date: 20150224
  Receipt Date: 20160415
  Transmission Date: 20160815
  Serious: Yes (Death, Other)
  Sender: FDA-Public Use
  Company Number: CH-ACCORD-028818

PATIENT
  Age: 2 Year
  Sex: Male

DRUGS (8)
  1. CARBOPLATIN. [Suspect]
     Active Substance: CARBOPLATIN
     Indication: NEUROBLASTOMA
  2. AMIKACIN/AMIKACIN SULFATE [Suspect]
     Active Substance: AMIKACIN SULFATE
     Indication: ANTIBIOTIC THERAPY
  3. VANCOMYCIN [Suspect]
     Active Substance: VANCOMYCIN
     Indication: ANTIBIOTIC LEVEL
  4. LINEZOLID. [Concomitant]
     Active Substance: LINEZOLID
  5. MEROPENEM. [Concomitant]
     Active Substance: MEROPENEM
     Indication: ANTIBIOTIC LEVEL
  6. CEFTRIAXONE/CEFTRIAXONE SODIUM [Concomitant]
     Active Substance: CEFTRIAXONE SODIUM
     Indication: ANTIBIOTIC THERAPY
  7. ETOPOSIDE. [Suspect]
     Active Substance: ETOPOSIDE
     Indication: NEUROBLASTOMA
  8. MELPHALAN [Suspect]
     Active Substance: MELPHALAN
     Indication: NEUROBLASTOMA

REACTIONS (9)
  - Pancytopenia [Unknown]
  - Carbamoyl phosphate synthetase deficiency [Not Recovered/Not Resolved]
  - Hyperammonaemic encephalopathy [Fatal]
  - Tubulointerstitial nephritis [Unknown]
  - Mucosal inflammation [Unknown]
  - Gastrointestinal haemorrhage [Unknown]
  - Coma [Unknown]
  - Pyrexia [Unknown]
  - Hyperlactacidaemia [Unknown]
